FAERS Safety Report 10867689 (Version 1)
Quarter: 2015Q1

REPORT INFORMATION
  Report Type: Spontaneous
  Country: US (occurrence: US)
  Receive Date: 20150225
  Receipt Date: 20150225
  Transmission Date: 20150721
  Serious: Yes (Other)
  Sender: FDA-Public Use
  Company Number: US-BAYER-2015-024139

PATIENT
  Age: 29 Year
  Sex: Male
  Weight: 65.76 kg

DRUGS (1)
  1. KOGENATE FS [Suspect]
     Active Substance: ANTIHEMOPHILIC FACTOR, HUMAN RECOMBINANT
     Indication: FACTOR VIII DEFICIENCY
     Dosage: 2000  TIW
     Route: 042
     Dates: start: 200910

REACTIONS (2)
  - Haemarthrosis [None]
  - Treatment noncompliance [None]

NARRATIVE: CASE EVENT DATE: 20150209
